FAERS Safety Report 7827810-2 (Version None)
Quarter: 2011Q4

REPORT INFORMATION
  Report Type: 
  Country: None (occurrence: None)
  Receive Date: 20111017
  Receipt Date: 20111004
  Transmission Date: 20120403
  Serious: Yes (Hospitalization, Disabling, Other)
  Sender: FDA-Public Use
  Company Number: ACO_27059_2011

PATIENT
  Age: 66 Year
  Sex: Female
  Weight: 74.8 kg

DRUGS (4)
  1. VITAMINS NOS (VITAMINS NOS) [Concomitant]
  2. AMPYRA [Suspect]
     Indication: GAIT DISTURBANCE
     Dosage: 10 MG, BID, ORAL
     Route: 048
     Dates: start: 20110818, end: 20110822
  3. SIMVASTATIN [Concomitant]
  4. TOLTERODINE TARTRATE [Concomitant]

REACTIONS (7)
  - CONSCIOUSNESS FLUCTUATING [None]
  - FEELING OF BODY TEMPERATURE CHANGE [None]
  - MUSCULAR WEAKNESS [None]
  - ABASIA [None]
  - FALL [None]
  - HALLUCINATION [None]
  - MALAISE [None]
